FAERS Safety Report 6765264-8 (Version None)
Quarter: 2010Q2

REPORT INFORMATION
  Report Type: 
  Country: None (occurrence: None)
  Receive Date: 20100611
  Receipt Date: 20100602
  Transmission Date: 20101027
  Serious: Yes (Hospitalization)
  Sender: FDA-Public Use
  Company Number: US-ELI_LILLY_AND_COMPANY-CA201006001161

PATIENT
  Sex: Male

DRUGS (18)
  1. GEMCITABINE HYDROCHLORIDE [Suspect]
     Indication: PANCREATIC CARCINOMA
     Dosage: 125 MG/M2, UNKNOWN
     Route: 065
     Dates: start: 20100412
  2. PACLITAXEL [Suspect]
     Indication: PANCREATIC CARCINOMA
     Dosage: 1000 MG/M2, UNKNOWN
     Route: 065
     Dates: start: 20100412
  3. DOMPERIDONE [Concomitant]
     Indication: DYSPEPSIA
  4. NEXIUM [Concomitant]
     Indication: DYSPEPSIA
  5. COLACE [Concomitant]
     Indication: CONSTIPATION
  6. SENOKOT [Concomitant]
     Indication: CONSTIPATION
  7. OXYCONTIN [Concomitant]
     Indication: ABDOMINAL PAIN
  8. OXYCODONE [Concomitant]
     Indication: ABDOMINAL PAIN
  9. LACTULOSE [Concomitant]
     Indication: CONSTIPATION
  10. ONDANSETRON [Concomitant]
     Indication: NAUSEA
  11. PANCRELIPASE [Concomitant]
     Indication: PANCREATIC ENZYMES DECREASED
  12. ADVIL COLD AND SINUS [Concomitant]
     Indication: CERUMEN IMPACTION
  13. STEMETIL [Concomitant]
     Indication: NAUSEA
  14. DEXAMETHASONE [Concomitant]
     Indication: DECREASED APPETITE
  15. PROCTOSEDYL [Concomitant]
     Indication: HAEMORRHOIDS
  16. FRAGMIN [Concomitant]
     Indication: PORTAL VEIN THROMBOSIS
  17. TYLENOL COLD [Concomitant]
     Indication: SINUS CONGESTION
  18. BIOTENE [Concomitant]
     Indication: MUCOSAL INFLAMMATION

REACTIONS (8)
  - CHOLANGITIS [None]
  - CITROBACTER INFECTION [None]
  - CLOSTRIDIAL INFECTION [None]
  - DILATATION INTRAHEPATIC DUCT ACQUIRED [None]
  - ENTEROBACTER INFECTION [None]
  - METASTASES TO LIVER [None]
  - PANCREATIC DUCT OBSTRUCTION [None]
  - SEPSIS [None]
